FAERS Safety Report 13135375 (Version 1)
Quarter: 2017Q1

REPORT INFORMATION
  Report Type: Report from Study
  Country: US (occurrence: US)
  Receive Date: 20170120
  Receipt Date: 20170120
  Transmission Date: 20170428
  Serious: Yes (Death, Life-Threatening, Other)
  Sender: FDA-Public Use
  Company Number: US-MYLANLABS-2017M1002270

PATIENT

DRUGS (1)
  1. CARBOPLATIN. [Suspect]
     Active Substance: CARBOPLATIN
     Indication: IMMUNE TOLERANCE INDUCTION
     Route: 065

REACTIONS (2)
  - Anaphylactic reaction [Fatal]
  - Cardio-respiratory arrest [Fatal]
